FAERS Safety Report 19579802 (Version 1)
Quarter: 2021Q3

REPORT INFORMATION
  Report Type: Report from Study
  Country: BG (occurrence: BG)
  Receive Date: 20210720
  Receipt Date: 20210720
  Transmission Date: 20211014
  Serious: Yes (Hospitalization)
  Sender: FDA-Public Use
  Company Number: BG-CELLTRION INC.-2021BG002350

PATIENT

DRUGS (11)
  1. BINOCRIT [Concomitant]
     Active Substance: ERYTHROPOIETIN
     Indication: ANAEMIA
     Dosage: ONGOING = NOT CHECKED
     Dates: start: 20200710, end: 20200710
  2. ZOLEDRONIC ACID [Suspect]
     Active Substance: ZOLEDRONIC ACID
     Indication: BREAST CANCER METASTATIC
  3. DOCETAXEL. [Suspect]
     Active Substance: DOCETAXEL
     Indication: BREAST CANCER METASTATIC
     Dosage: 75 MG, EVERY 3 WEEKS
     Route: 042
     Dates: start: 20191031
  4. ZOLEDRONIC ACID [Suspect]
     Active Substance: ZOLEDRONIC ACID
     Indication: BREAST CANCER
     Dosage: 4 MG EVERY 4 WEEKS
     Route: 042
     Dates: start: 20191114
  5. TRASTUZUMAB (UNKNOWN) [Suspect]
     Active Substance: TRASTUZUMAB
     Indication: BREAST CANCER
     Dosage: 300 MG EVERY 3 WEEKS
     Route: 042
     Dates: start: 20191127
  6. DOCETAXEL. [Suspect]
     Active Substance: DOCETAXEL
     Indication: BREAST CANCER
  7. ZARZIO [Concomitant]
     Active Substance: FILGRASTIM
     Indication: LEUKOPENIA
     Dosage: ONGOING = NOT CHECKED
     Dates: start: 20200709, end: 20200709
  8. TRASTUZUMAB (UNKNOWN) [Suspect]
     Active Substance: TRASTUZUMAB
     Indication: BREAST CANCER METASTATIC
     Dosage: 450 MG, EVERY 3 WEEKS (FREQUENCY: Q3W ? EVERY 3 WEEKS MOST RECENT 300 MG DOSE PRIOR TO THE EVENT: 27
     Route: 042
     Dates: start: 20191031, end: 20191031
  9. ENALAPRIL [Concomitant]
     Active Substance: ENALAPRIL
     Dosage: ONGOING = CHECKED
     Dates: start: 20091215
  10. ANALGIN (BULGARIA) [Concomitant]
     Dosage: ONGOING = NOT CHECKED
     Dates: start: 20191015, end: 20200824
  11. TRAMADOL. [Concomitant]
     Active Substance: TRAMADOL
     Dosage: ONGOING = CHECKED
     Dates: start: 20200824

REACTIONS (2)
  - Underdose [Unknown]
  - Anaemia [Recovered/Resolved with Sequelae]

NARRATIVE: CASE EVENT DATE: 20200807
